FAERS Safety Report 4300808-7 (Version None)
Quarter: 2004Q1

REPORT INFORMATION
  Report Type: 
  Country: None (occurrence: None)
  Receive Date: 20040218
  Receipt Date: 20040129
  Transmission Date: 20041129
  Serious: Yes (Hospitalization, Other)
  Sender: FDA-Public Use
  Company Number: USA030948499

PATIENT
  Age: 74 Year
  Sex: Female
  Weight: 60 kg

DRUGS (2)
  1. FORTEO [Suspect]
     Indication: OSTEOPOROSIS
     Dates: start: 20030818
  2. FORTEO [Suspect]
     Indication: SPINAL COLUMN STENOSIS
     Dates: start: 20030818

REACTIONS (2)
  - FALL [None]
  - FEMUR FRACTURE [None]
